FAERS Safety Report 13956825 (Version 2)
Quarter: 2018Q1

REPORT INFORMATION
  Report Type: Spontaneous
  Country: FR (occurrence: FR)
  Receive Date: 20170911
  Receipt Date: 20180316
  Transmission Date: 20180508
  Serious: Yes (Hospitalization, Other)
  Sender: FDA-Public Use
  Company Number: FR-PFIZER INC-2017383664

PATIENT
  Age: 39 Year
  Sex: Female
  Weight: 107 kg

DRUGS (6)
  1. CLOXACILLIN [Concomitant]
     Active Substance: CLOXACILLIN
  2. OFLOCET [Concomitant]
     Active Substance: OFLOXACIN
  3. BREXIN (PIROXICAM BETADEX) [Suspect]
     Active Substance: PIROXICAM BETADEX
     Indication: SCIATICA
     Route: 048
  4. GENTAMYCIN [Concomitant]
     Active Substance: GENTAMICIN
  5. DALACINE [Suspect]
     Active Substance: CLINDAMYCIN HYDROCHLORIDE
     Indication: SEPTIC SHOCK
     Dosage: 600 MG, 4X/DAY
     Route: 041
     Dates: start: 20170806, end: 20170809
  6. DALACINE [Suspect]
     Active Substance: CLINDAMYCIN HYDROCHLORIDE
     Indication: SEPTIC SHOCK
     Dosage: 600 MG, 4X/DAY
     Route: 048
     Dates: start: 20170810, end: 20170816

REACTIONS (1)
  - Drug reaction with eosinophilia and systemic symptoms [Recovered/Resolved]

NARRATIVE: CASE EVENT DATE: 20170806
